FAERS Safety Report 4788228-2 (Version None)
Quarter: 2005Q4

REPORT INFORMATION
  Report Type: 
  Country: None (occurrence: None)
  Receive Date: 20051004
  Receipt Date: 20051004
  Transmission Date: 20060501
  Serious: Yes (Life-Threatening)
  Sender: FDA-Public Use
  Company Number: None

PATIENT
  Sex: Male
  Weight: 112.0385 kg

DRUGS (1)
  1. TYLENOL EXTRA STRENGTH COOL    500 MG       MCNEIL CONSUMER/SPECIALTY [Suspect]
     Indication: PYREXIA
     Dosage: 2 CAPLETS   EVERY 4 HOURS   PO
     Route: 048
     Dates: start: 20051003, end: 20051003

REACTIONS (7)
  - CYANOSIS [None]
  - DIZZINESS [None]
  - DRUG HYPERSENSITIVITY [None]
  - DYSGEUSIA [None]
  - DYSPNOEA [None]
  - PALLOR [None]
  - PARAESTHESIA ORAL [None]
